FAERS Safety Report 14577411 (Version 1)
Quarter: 2018Q1

REPORT INFORMATION
  Report Type: Spontaneous
  Country: US (occurrence: US)
  Receive Date: 20180227
  Receipt Date: 20180227
  Transmission Date: 20180509
  Serious: Yes (Other)
  Sender: FDA-Public Use
  Company Number: US-PFIZER INC-2017326651

PATIENT
  Age: 60 Year
  Sex: Female

DRUGS (5)
  1. XELJANZ [Suspect]
     Active Substance: TOFACITINIB CITRATE
     Indication: RHEUMATOID ARTHRITIS
     Dosage: 5 MG, 2X/DAY
     Route: 048
     Dates: start: 201403
  2. IRON [Concomitant]
     Active Substance: IRON
     Indication: ROUTINE HEALTH MAINTENANCE
     Dosage: 65 MG, 1X/DAY
     Route: 048
  3. CALCIUM [Concomitant]
     Active Substance: CALCIUM
     Dosage: 333 MG, 1X/DAY
  4. FISH OIL [Concomitant]
     Active Substance: FISH OIL
     Indication: ROUTINE HEALTH MAINTENANCE
     Dosage: 1200 MG, UNK
  5. TYLENOL [Concomitant]
     Active Substance: ACETAMINOPHEN

REACTIONS (2)
  - Drug dose omission [Unknown]
  - Foot deformity [Unknown]

NARRATIVE: CASE EVENT DATE: 20180221
